FAERS Safety Report 6351535-6 (Version None)
Quarter: 2009Q3

REPORT INFORMATION
  Report Type: 
  Country: None (occurrence: None)
  Receive Date: 20090912
  Receipt Date: 20090622
  Transmission Date: 20100115
  Serious: Yes (Hospitalization)
  Sender: FDA-Public Use
  Company Number: US-ABBOTT-07P-163-0418669-00

PATIENT
  Sex: Female
  Weight: 79.45 kg

DRUGS (18)
  1. HUMIRA [Suspect]
     Indication: CROHN'S DISEASE
     Route: 058
     Dates: start: 20070911
  2. INEGY [Concomitant]
     Indication: BLOOD CHOLESTEROL
  3. GEMFIBROZIL [Concomitant]
     Indication: DIABETES MELLITUS
     Route: 048
  4. COLAZOL [Concomitant]
     Indication: CROHN'S DISEASE
     Route: 048
  5. GLIPIZIDE [Concomitant]
     Indication: DIABETES MELLITUS
  6. ESOMEPRAZOLE MAGNESIUM [Concomitant]
     Indication: GASTROOESOPHAGEAL REFLUX DISEASE
     Route: 048
  7. ENALAPRIL MALEATE [Concomitant]
     Indication: DRUG USE FOR UNKNOWN INDICATION
     Route: 048
  8. ATENOLOL [Concomitant]
     Indication: HYPERTENSION
     Route: 048
  9. ISOSORBIDE [Concomitant]
     Indication: DRUG USE FOR UNKNOWN INDICATION
     Route: 048
  10. HYDROCHLOROTHIAZIDE [Concomitant]
     Indication: DIURETIC THERAPY
     Route: 048
  11. MULTI-VITAMIN [Concomitant]
     Indication: VITAMIN SUPPLEMENTATION
     Route: 048
  12. ASPIRIN [Concomitant]
     Indication: DRUG USE FOR UNKNOWN INDICATION
     Route: 048
  13. CLOPIDOGREL [Concomitant]
     Indication: CARDIOVASCULAR EVENT PROPHYLAXIS
     Route: 048
  14. LEVOTHYROXINE SODIUM [Concomitant]
     Indication: HYPOTHYROIDISM
     Route: 048
  15. LANTUS [Concomitant]
     Indication: DIABETES MELLITUS
     Route: 058
  16. NOVALOG INSULIN [Concomitant]
     Indication: DIABETES MELLITUS
     Route: 058
  17. NOVALOG [Concomitant]
     Indication: DIABETES MELLITUS
     Route: 058
  18. AZATHIOPRINE [Concomitant]
     Indication: CROHN'S DISEASE
     Route: 048

REACTIONS (4)
  - CHEST PAIN [None]
  - DYSPNOEA [None]
  - INCORRECT DOSE ADMINISTERED [None]
  - INJECTION SITE EXTRAVASATION [None]
